FAERS Safety Report 18244416 (Version 3)
Quarter: 2021Q3

REPORT INFORMATION
  Report Type: Report from Study
  Country: JP (occurrence: JP)
  Receive Date: 20200908
  Receipt Date: 20210712
  Transmission Date: 20211014
  Serious: Yes (Death, Hospitalization)
  Sender: FDA-Public Use
  Company Number: JP-JNJFOC-A-CH2018-167526

PATIENT
  Age: 74 Year
  Sex: Male
  Weight: 52.2 kg

DRUGS (19)
  1. UPTRAVI [Suspect]
     Active Substance: SELEXIPAG
     Route: 048
     Dates: start: 20190514, end: 20191009
  2. UPTRAVI [Suspect]
     Active Substance: SELEXIPAG
     Route: 048
     Dates: start: 20200109, end: 20200130
  3. LIVALO [Concomitant]
     Active Substance: PITAVASTATIN CALCIUM
     Dosage: 2 MG, QD
     Dates: end: 20200116
  4. TRACLEER [Suspect]
     Active Substance: BOSENTAN
     Indication: PULMONARY ARTERIAL HYPERTENSION
     Dosage: 62.5 MG, QD
     Route: 048
     Dates: start: 20160115, end: 20160218
  5. UPTRAVI [Suspect]
     Active Substance: SELEXIPAG
     Route: 048
     Dates: start: 20200131, end: 20200401
  6. PLETAAL [Concomitant]
     Active Substance: CILOSTAZOL
     Dosage: 100 MG, QD
     Dates: end: 20200401
  7. LASIX [Concomitant]
     Active Substance: FUROSEMIDE
     Dosage: 20 MG, QD
     Dates: end: 20200401
  8. TRACLEER [Suspect]
     Active Substance: BOSENTAN
     Indication: SKIN ULCER
     Dosage: 62.5 MG, BID
     Route: 048
     Dates: start: 20160219, end: 20200401
  9. UPTRAVI [Suspect]
     Active Substance: SELEXIPAG
     Route: 048
     Dates: start: 20191010, end: 20200108
  10. PREDONINE [Concomitant]
     Active Substance: PREDNISOLONE
     Dosage: 8 MG, QD
     Dates: end: 20200401
  11. SAMTIREL [Concomitant]
     Active Substance: ATOVAQUONE
     Indication: PROPHYLAXIS
     Dosage: 1500 MG, QD
     Dates: end: 20200401
  12. DORNER [Concomitant]
     Active Substance: BERAPROST SODIUM
     Indication: PULMONARY ARTERIAL HYPERTENSION
     Dosage: 120 MCG, QD
     Dates: end: 20200401
  13. FEBURIC [Concomitant]
     Active Substance: FEBUXOSTAT
     Dosage: 10 MG, QD
     Dates: end: 20200401
  14. FAMOTIDINE. [Concomitant]
     Active Substance: FAMOTIDINE
     Indication: PROPHYLAXIS
     Dosage: 20 MG, QD
     Dates: end: 20200401
  15. UPTRAVI [Suspect]
     Active Substance: SELEXIPAG
     Indication: PULMONARY ARTERIAL HYPERTENSION
     Route: 048
     Dates: start: 20190402, end: 20190513
  16. CARBOCISTEINE [Concomitant]
     Active Substance: CARBOCYSTEINE
     Indication: CHRONIC OBSTRUCTIVE PULMONARY DISEASE
     Dosage: 1500 MG, QD
     Dates: end: 20200401
  17. ALFAROL [Concomitant]
     Active Substance: ALFACALCIDOL
     Indication: PROPHYLAXIS
     Dosage: 0.25 MG, QD
     Dates: end: 20200401
  18. COLCHICINE. [Concomitant]
     Active Substance: COLCHICINE
     Dosage: 0.5 MG, QD
     Dates: end: 20200401
  19. SPIOLTO RESPIMAT [Concomitant]
     Active Substance: OLODATEROL HYDROCHLORIDE\TIOTROPIUM BROMIDE MONOHYDRATE
     Dosage: 2 DF, QD
     Dates: end: 20200401

REACTIONS (9)
  - Alanine aminotransferase increased [Recovered/Resolved]
  - Scleroderma [Fatal]
  - Chest discomfort [Recovering/Resolving]
  - Dyspnoea [Recovering/Resolving]
  - Pneumonia bacterial [Fatal]
  - Hepatic function abnormal [Recovered/Resolved]
  - Aspartate aminotransferase increased [Recovered/Resolved]
  - Pericardial drainage [Unknown]
  - Pericardial effusion [Recovering/Resolving]

NARRATIVE: CASE EVENT DATE: 20160815
